FAERS Safety Report 9858861 (Version 1)
Quarter: 2014Q1

REPORT INFORMATION
  Report Type: Spontaneous
  Country: US (occurrence: US)
  Receive Date: 20140131
  Receipt Date: 20140131
  Transmission Date: 20141002
  Serious: No
  Sender: FDA-Public Use
  Company Number: US-BAXTER-2014BAX003710

PATIENT
  Age: 73 Year
  Sex: Female

DRUGS (3)
  1. DIANEAL LOW CALCIUM (ULTRABAG) [Suspect]
     Indication: RENAL FAILURE CHRONIC
     Route: 033
  2. ANCEF [Suspect]
     Indication: URINARY TRACT INFECTION
     Route: 033
  3. FORTAZ [Suspect]
     Indication: URINARY TRACT INFECTION
     Route: 033

REACTIONS (1)
  - Urinary tract infection [Recovered/Resolved]
